FAERS Safety Report 7603561-4 (Version None)
Quarter: 2011Q2

REPORT INFORMATION
  Report Type: 
  Country: None (occurrence: None)
  Receive Date: 20110630
  Receipt Date: 20110616
  Transmission Date: 20111010
  Serious: Yes (Hospitalization)
  Sender: FDA-Public Use
  Company Number: 2011AP001249

PATIENT
  Age: 67 Year
  Sex: Female

DRUGS (7)
  1. AMLODIPINE [Suspect]
     Indication: PRODUCT USED FOR UNKNOWN INDICATION
  2. CLOZARIL [Suspect]
     Dosage: 700 MG; PO, 350 MG; PO; QD, 700 MG;
     Route: 048
     Dates: start: 19990531
  3. CLOZARIL [Suspect]
     Dosage: 700 MG; PO, 350 MG; PO; QD, 700 MG;
     Route: 048
     Dates: start: 20030420
  4. FUROSEMIDE [Suspect]
     Indication: PRODUCT USED FOR UNKNOWN INDICATION
  5. DOCUSATE (DOCUSATE) [Suspect]
     Indication: PRODUCT USED FOR UNKNOWN INDICATION
  6. SENNA /00142201/ (SENNA ALEXANDRINA) [Suspect]
     Indication: PRODUCT USED FOR UNKNOWN INDICATION
  7. DIGOXIN [Suspect]
     Indication: PRODUCT USED FOR UNKNOWN INDICATION

REACTIONS (3)
  - DRUG LEVEL INCREASED [None]
  - OVERDOSE [None]
  - CARDIOACTIVE DRUG LEVEL INCREASED [None]
